FAERS Safety Report 6250430-0 (Version None)
Quarter: 2009Q2

REPORT INFORMATION
  Report Type: 
  Country: None (occurrence: None)
  Receive Date: 20090630
  Receipt Date: 20090617
  Transmission Date: 20091009
  Serious: Yes (Hospitalization)
  Sender: FDA-Public Use
  Company Number: JP-ELI_LILLY_AND_COMPANY-JP200904005091

PATIENT
  Sex: Female
  Weight: 45 kg

DRUGS (12)
  1. EVISTA [Suspect]
     Indication: OSTEOPOROSIS POSTMENOPAUSAL
     Dosage: 60 MG, DAILY (1/D)
     Route: 048
     Dates: start: 20080324, end: 20090122
  2. ELCATONIN [Concomitant]
     Indication: OSTEOPOROSIS POSTMENOPAUSAL
     Dosage: 20 IU, WEEKLY (1/W)
     Route: 030
     Dates: start: 20080328
  3. OPALMON [Concomitant]
     Indication: LUMBAR SPINAL STENOSIS
     Dosage: 5 UG, DAILY (1/D)
     Route: 048
     Dates: start: 20081230, end: 20090122
  4. ALFACALCIDOL [Concomitant]
     Indication: OSTEOPOROSIS POSTMENOPAUSAL
     Dosage: 0.5 UG, DAILY (1/D)
     Route: 048
     Dates: start: 20090116, end: 20090122
  5. AMLODIPINE [Concomitant]
     Dosage: 5 MG, DAILY (1/D)
     Route: 048
  6. LIPODOWN [Concomitant]
     Dosage: 5 MG, DAILY (1/D)
     Route: 048
  7. THYRADIN S [Concomitant]
     Dosage: 50 UG, DAILY (1/D)
     Route: 048
  8. RINGEREAZE [Concomitant]
     Indication: BACK PAIN
     Dosage: 60 MG, 3/D
     Route: 048
     Dates: start: 20080322, end: 20080329
  9. EPESO [Concomitant]
     Indication: BACK PAIN
     Dosage: 50 MG, 3/D
     Route: 048
     Dates: start: 20080322, end: 20080410
  10. MUCOSTA [Concomitant]
     Indication: PROPHYLAXIS
     Dosage: 100 MG, 3/D
     Route: 048
     Dates: start: 20080322, end: 20080410
  11. VOLTAREN [Concomitant]
     Indication: BACK PAIN
     Dosage: 25 MG, 3/D
     Route: 048
     Dates: start: 20080401, end: 20080410
  12. LORCAM [Concomitant]
     Indication: BACK PAIN
     Dosage: 4 MG, 3/D
     Route: 048
     Dates: start: 20080411, end: 20080715

REACTIONS (4)
  - GASTRIC ULCER HAEMORRHAGE [None]
  - INTERMITTENT CLAUDICATION [None]
  - PLEURAL EFFUSION [None]
  - REFLUX OESOPHAGITIS [None]
